FAERS Safety Report 19939485 (Version 1)
Quarter: 2021Q4

REPORT INFORMATION
  Report Type: Spontaneous
  Country: US (occurrence: US)
  Receive Date: 20211011
  Receipt Date: 20211011
  Transmission Date: 20220304
  Serious: Yes (Life-Threatening, Hospitalization)
  Sender: FDA-Public Use
  Company Number: US-JUBILANT CADISTA PHARMACEUTICALS-2021JUB00305

PATIENT
  Age: 42 Year
  Sex: Male

DRUGS (4)
  1. OLANZAPINE [Suspect]
     Active Substance: OLANZAPINE
     Indication: Schizophrenia
     Dosage: 20 MG, 1X/DAY
     Route: 065
  2. HALOPERIDOL [Concomitant]
     Active Substance: HALOPERIDOL
     Indication: Schizophrenia
     Dosage: 10 MG, 1X/DAY
     Route: 065
  3. HALOPERIDOL DECANOATE [Concomitant]
     Active Substance: HALOPERIDOL DECANOATE
     Indication: Schizophrenia
     Dosage: 100 MG; EVERY 4 WEEKS
     Route: 065
  4. HALOPERIDOL DECANOATE [Concomitant]
     Active Substance: HALOPERIDOL DECANOATE
     Dosage: 200 MG; EVERY 4 WEEKS
     Route: 065

REACTIONS (5)
  - Pancreatitis necrotising [Recovering/Resolving]
  - Peptostreptococcus infection [Recovered/Resolved]
  - Lactic acidosis [Recovered/Resolved]
  - Type 1 diabetes mellitus [Recovering/Resolving]
  - Acute respiratory failure [Recovered/Resolved]
